FAERS Safety Report 23540180 (Version 1)
Quarter: 2024Q1

REPORT INFORMATION
  Report Type: Other
  Country: DE (occurrence: DE)
  Receive Date: 20240219
  Receipt Date: 20240219
  Transmission Date: 20240410
  Serious: Yes (Congenital Anomaly)
  Sender: FDA-Public Use
  Company Number: DE-Merck Healthcare KGaA-9356715

PATIENT
  Sex: Male
  Weight: 3 kg

DRUGS (3)
  1. MAVENCLAD [Suspect]
     Active Substance: CLADRIBINE
     Indication: Multiple sclerosis
     Dosage: YEAR ONE WEEK ONE THERAPY: PRODUCT TAKEN BY MOTHER
     Route: 064
     Dates: start: 20181015, end: 20181019
  2. MAVENCLAD [Suspect]
     Active Substance: CLADRIBINE
     Dosage: YEAR ONE WEEK TWO THERAPY: PRODUCT TAKEN BY MOTHER
     Route: 064
     Dates: start: 20181115, end: 20181119
  3. MAVENCLAD [Suspect]
     Active Substance: CLADRIBINE
     Dosage: YEAR TWO WEEK ONE THERAPY: PRODUCT TAKEN BY MOTHER
     Route: 064
     Dates: start: 20191206, end: 20191210

REACTIONS (2)
  - Haemangioma congenital [Unknown]
  - Haemangioma of skin [Unknown]

NARRATIVE: CASE EVENT DATE: 20190101
